FAERS Safety Report 9724705 (Version 1)
Quarter: 2013Q4

REPORT INFORMATION
  Report Type: Spontaneous
  Country: FR (occurrence: FR)
  Receive Date: 20131202
  Receipt Date: 20131202
  Transmission Date: 20140711
  Serious: Yes (Life-Threatening, Other)
  Sender: FDA-Public Use
  Company Number: FR-009507513-1311FRA012502

PATIENT
  Age: 65 Year
  Sex: Male

DRUGS (16)
  1. TIENAM 500MG/500MG, POUDRE POUR PERFUSION [Suspect]
     Indication: INFECTION
     Dosage: UNK
     Route: 042
     Dates: start: 20130515, end: 20130606
  2. VANCOMYCIN [Suspect]
     Indication: INFECTION
     Dosage: 2 G, QD
     Route: 042
     Dates: start: 20130515, end: 20130606
  3. PERFALGAN [Suspect]
     Dosage: UNK
     Route: 042
     Dates: start: 20130528, end: 20130606
  4. AMLODIPINE [Concomitant]
  5. CALCIDIA [Concomitant]
  6. DOLIPRANE [Concomitant]
  7. PARIET [Concomitant]
  8. TOPALGIC (TRAMADOL HYDROCHLORIDE) [Concomitant]
  9. TRANSIPEG [Concomitant]
  10. DEDROGYL [Concomitant]
  11. CALCIPARIN [Concomitant]
  12. UMULINE RAPIDE [Concomitant]
  13. NOVOMIX [Concomitant]
  14. DISCOTRINE [Concomitant]
  15. BISOCOR [Concomitant]
  16. HUMALOG [Concomitant]

REACTIONS (3)
  - Drug reaction with eosinophilia and systemic symptoms [Recovered/Resolved]
  - Renal failure [Recovered/Resolved with Sequelae]
  - Hypotension [Recovered/Resolved]
